FAERS Safety Report 11757600 (Version 2)
Quarter: 2015Q4

REPORT INFORMATION
  Report Type: Spontaneous
  Country: US (occurrence: US)
  Receive Date: 20151120
  Receipt Date: 20151126
  Transmission Date: 20160304
  Serious: Yes (Other)
  Sender: FDA-Public Use
  Company Number: US-ROCHE-1652534

PATIENT
  Age: 41 Year
  Sex: Female
  Weight: 83.54 kg

DRUGS (18)
  1. XOLAIR [Suspect]
     Active Substance: OMALIZUMAB
     Route: 030
     Dates: start: 20151013, end: 20151013
  2. CIPROFLOXAN [Concomitant]
     Route: 065
  3. CYCLOBENZAPRINE [Concomitant]
     Active Substance: CYCLOBENZAPRINE
     Route: 065
  4. APAP/OXYCODONE [Concomitant]
     Active Substance: ACETAMINOPHEN\OXYCODONE HYDROCHLORIDE
     Dosage: 5-325 MG
     Route: 065
  5. RANITIDINE [Concomitant]
     Active Substance: RANITIDINE\RANITIDINE HYDROCHLORIDE
     Route: 065
  6. FLUTICASONE [Concomitant]
     Active Substance: FLUTICASONE\FLUTICASONE PROPIONATE
     Dosage: DOSE: 1 SPRAY IN EACH NOSTRIL
     Route: 045
  7. HYDROCODONE/APAP [Concomitant]
     Active Substance: ACETAMINOPHEN\HYDROCODONE BITARTRATE
  8. MELOXICAM. [Concomitant]
     Active Substance: MELOXICAM
     Route: 065
  9. METRONIDAZOL [Concomitant]
     Active Substance: METRONIDAZOLE
     Route: 065
  10. EPIPEN [Concomitant]
     Active Substance: EPINEPHRINE
     Dosage: 2-PAK INJECT: USE 1 FOR LIFE THREATENING REACTION
     Route: 065
  11. MONTELUKAST SODIUM. [Concomitant]
     Active Substance: MONTELUKAST SODIUM
     Route: 065
  12. ELOCON [Concomitant]
     Active Substance: MOMETASONE FUROATE
     Route: 065
  13. XOLAIR [Suspect]
     Active Substance: OMALIZUMAB
     Indication: PRODUCT USED FOR UNKNOWN INDICATION
     Route: 065
     Dates: start: 20151001
  14. LEVOCETIRIZIN [Concomitant]
     Route: 065
  15. MOMETASONE [Concomitant]
     Active Substance: MOMETASONE
  16. PREDNISONE. [Concomitant]
     Active Substance: PREDNISONE
     Dosage: 1 TAB TWICE DAILY FOR 7 DAYS, THEN 1 TAB IN THE MORNING FOR 7 DAYS THEN STOP.
     Route: 065
  17. PREDNISONE. [Concomitant]
     Active Substance: PREDNISONE
     Route: 065
  18. TRAMADOL HCL [Concomitant]
     Active Substance: TRAMADOL HYDROCHLORIDE
     Route: 065

REACTIONS (5)
  - Eye swelling [Recovered/Resolved]
  - Urticaria [Unknown]
  - Hypersensitivity [Recovered/Resolved]
  - Throat tightness [Recovered/Resolved]
  - Swelling face [Recovered/Resolved]

NARRATIVE: CASE EVENT DATE: 20151013
